FAERS Safety Report 10153719 (Version 3)
Quarter: 2015Q2

REPORT INFORMATION
  Report Type: Spontaneous
  Country: FR (occurrence: FR)
  Receive Date: 20140506
  Receipt Date: 20150602
  Transmission Date: 20150821
  Serious: Yes (Disabling, Other)
  Sender: FDA-Public Use
  Company Number: FR-ACCORD-023459

PATIENT
  Age: 69 Year
  Sex: Male

DRUGS (4)
  1. PREVISCAN [Concomitant]
     Active Substance: FLUINDIONE
  2. DOCETAXEL ACCORD [Suspect]
     Active Substance: DOCETAXEL
     Indication: PRODUCT USED FOR UNKNOWN INDICATION
     Dosage: 1 DF 6 MONTH COURSE, 80 MG/4 ML
     Route: 042
     Dates: start: 20130925
  3. CORTANCYL [Suspect]
     Active Substance: PREDNISONE
     Indication: PRODUCT USED FOR UNKNOWN INDICATION
     Dosage: 5 MG
     Route: 048
  4. BISOPROLOL [Concomitant]
     Active Substance: BISOPROLOL

REACTIONS (4)
  - Conjunctivitis allergic [Unknown]
  - Onycholysis [Not Recovered/Not Resolved]
  - Ophthalmic herpes simplex [Recovered/Resolved with Sequelae]
  - Corneal abscess [Not Recovered/Not Resolved]

NARRATIVE: CASE EVENT DATE: 20131121
